FAERS Safety Report 5266145-1 (Version None)
Quarter: 2007Q1

REPORT INFORMATION
  Report Type: 
  Country: None (occurrence: None)
  Receive Date: 20070305
  Receipt Date: 20070216
  Transmission Date: 20070707
  Serious: Yes (Hospitalization)
  Sender: FDA-Public Use
  Company Number: B0459139A

PATIENT
  Age: 2 Month
  Sex: Female
  Weight: 0.0454 kg

DRUGS (8)
  1. FLOVENT [Suspect]
     Indication: BRONCHOPULMONARY DYSPLASIA
     Dosage: TWICE PER DAY / INHALED
     Route: 055
  2. DOPAMINE HCL [Concomitant]
  3. DOBUTAMINE [Concomitant]
  4. ALBUMIN (HUMAN) [Concomitant]
  5. INDOMETHACIN [Concomitant]
  6. AMPICILLIN TRIHYDRATE [Concomitant]
  7. CEFOTAXIME [Concomitant]
  8. AMINOPHYLLINE [Concomitant]

REACTIONS (15)
  - ADRENAL INSUFFICIENCY [None]
  - APGAR SCORE LOW [None]
  - CAESAREAN SECTION [None]
  - CHORIOAMNIONITIS [None]
  - FUNISITIS [None]
  - GENITAL HAEMORRHAGE [None]
  - HYPERKALAEMIA [None]
  - HYPONATRAEMIA [None]
  - HYPOTENSION [None]
  - NECROSIS [None]
  - NEONATAL ASPHYXIA [None]
  - OLIGURIA [None]
  - PNEUMONIA ASPIRATION [None]
  - PREMATURE LABOUR [None]
  - UTERINE CONTRACTIONS ABNORMAL [None]
